FAERS Safety Report 21687102 (Version 1)
Quarter: 2022Q4

REPORT INFORMATION
  Report Type: Spontaneous
  Country: CN (occurrence: None)
  Receive Date: 20221206
  Receipt Date: 20221206
  Transmission Date: 20230112
  Serious: Yes (Other)
  Sender: FDA-Public Use
  Company Number: 2022A395930

PATIENT
  Age: 20474 Day
  Sex: Female

DRUGS (2)
  1. BUDESONIDE [Suspect]
     Active Substance: BUDESONIDE
     Route: 055
     Dates: start: 20220723, end: 20220724
  2. TERBUTALINE SULFATE [Suspect]
     Active Substance: TERBUTALINE SULFATE
     Indication: Bronchiectasis
     Route: 055
     Dates: start: 20220723, end: 20220724

REACTIONS (4)
  - Pruritus [Recovering/Resolving]
  - Erythema [Unknown]
  - Skin exfoliation [Unknown]
  - Swelling face [Unknown]

NARRATIVE: CASE EVENT DATE: 20220724
